FAERS Safety Report 7816088-1 (Version None)
Quarter: 2011Q4

REPORT INFORMATION
  Report Type: 
  Country: None (occurrence: None)
  Receive Date: 20111015
  Receipt Date: 20111005
  Transmission Date: 20120403
  Serious: Yes (Other)
  Sender: FDA-Public Use
  Company Number: US-ASTRAZENECA-2010SE19811

PATIENT
  Sex: Female

DRUGS (32)
  1. PROVIGIL [Concomitant]
  2. VITAMIN B-12 [Concomitant]
     Dosage: 1-1/2 CC EVERY THREE WEEKS
  3. ZOFRAN [Concomitant]
  4. ISOSORBIDE MONO [Concomitant]
  5. BENICAR [Concomitant]
  6. SYNTHROID [Concomitant]
  7. NITROGLYCERIN [Concomitant]
     Dosage: 0.4 AS NEEDED
  8. PERCOCET [Concomitant]
     Dosage: 10/325 (MAY TAKEN 4X DAILY)
  9. NORVASC [Concomitant]
  10. VALIUM [Concomitant]
     Dosage: 2-4 MG AS NEEDED
  11. XYLOCAIN OINT [Concomitant]
     Dosage: AS NEEDED
  12. KETOPROFEN PLUS [Concomitant]
     Dosage: AS NEEDED
  13. NEXIUM [Suspect]
     Route: 048
  14. POTASSIUM CHLORIDE [Concomitant]
  15. ESTRIDOL [Concomitant]
  16. ZAROXOLYN [Concomitant]
  17. GENTEAL [Concomitant]
  18. ASPIRIN [Concomitant]
     Dosage: AT NIGHT
  19. ALIGN [Concomitant]
  20. ANALPRAM HC [Concomitant]
     Dosage: AS NEEDED
  21. CENTRUM SILVER [Concomitant]
  22. WELLBUTRIN SR [Concomitant]
  23. MS CONTIN [Concomitant]
  24. GENTEAL [Concomitant]
  25. SURFAX [Concomitant]
  26. MS CONTIN [Concomitant]
     Dosage: AS REQUIRED
  27. VERAMIST NASAL [Concomitant]
     Dosage: AS NEEDED
     Route: 045
  28. TORSEMIDE [Concomitant]
  29. MIRAPEX [Concomitant]
     Dosage: 0.25 2 TABLET EVERY NIGHT+ 1 EXTRA AS NEEDED
  30. BENICAR [Concomitant]
     Dosage: AS REQUIRED
  31. ZEBETA [Concomitant]
  32. LAXATIVE OF CHOICE [Concomitant]

REACTIONS (4)
  - RENAL CANCER [None]
  - DRUG DOSE OMISSION [None]
  - ILL-DEFINED DISORDER [None]
  - GASTROOESOPHAGEAL REFLUX DISEASE [None]
